FAERS Safety Report 11128463 (Version 1)
Quarter: 2015Q2

REPORT INFORMATION
  Report Type: Spontaneous
  Country: US (occurrence: None)
  Receive Date: 20150520
  Receipt Date: 20150520
  Transmission Date: 20150821
  Serious: Yes (Hospitalization)
  Sender: FDA-Public Use
  Company Number: None

PATIENT
  Age: 73 Year
  Sex: Female
  Weight: 64.9 kg

DRUGS (4)
  1. PACLITAXEL 300 MG/50 ML APP [Suspect]
     Active Substance: PACLITAXEL
     Indication: MALIGNANT MELANOMA
     Dosage: 114 MG Q 7 DAYS
     Route: 042
     Dates: start: 20150518, end: 20150518
  2. CARBOPLATIN 600 MG/60 ML APP [Suspect]
     Active Substance: CARBOPLATIN
     Indication: OVARIAN CANCER
     Dosage: 200 MG Q 7 DAYS
     Route: 042
     Dates: start: 20150518, end: 20150518
  3. CARBOPLATIN 600 MG/60 ML APP [Suspect]
     Active Substance: CARBOPLATIN
     Indication: MALIGNANT MELANOMA
     Dosage: 200 MG Q 7 DAYS
     Route: 042
     Dates: start: 20150518, end: 20150518
  4. PACLITAXEL 300 MG/50 ML APP [Suspect]
     Active Substance: PACLITAXEL
     Indication: OVARIAN CANCER
     Dosage: 114 MG Q 7 DAYS
     Route: 042
     Dates: start: 20150518, end: 20150518

REACTIONS (5)
  - Pain in extremity [None]
  - Chromaturia [None]
  - Back pain [None]
  - Haemolysis [None]
  - Haemoglobin decreased [None]

NARRATIVE: CASE EVENT DATE: 20150518
